FAERS Safety Report 10057313 (Version 1)
Quarter: 2014Q2

REPORT INFORMATION
  Report Type: Report from Study
  Country: CA (occurrence: CA)
  Receive Date: 20140403
  Receipt Date: 20140403
  Transmission Date: 20141212
  Serious: Yes (Other)
  Sender: FDA-Public Use
  Company Number: CA-ABBVIE-14P-028-1216775-00

PATIENT
  Age: 45 Year
  Sex: Male
  Weight: 122.58 kg

DRUGS (4)
  1. HUMIRA [Suspect]
     Indication: PSORIASIS
     Route: 058
     Dates: start: 20090121, end: 20100221
  2. HUMIRA [Suspect]
     Route: 058
  3. LOSEC [Concomitant]
     Indication: GASTROOESOPHAGEAL REFLUX DISEASE
     Route: 048
     Dates: start: 199506
  4. METOPROLOL [Concomitant]
     Indication: HYPERTENSION
     Route: 048
     Dates: start: 199907

REACTIONS (10)
  - Inguinal hernia [Recovered/Resolved]
  - Inguinal hernia repair [Unknown]
  - Inguinal hernia repair [Unknown]
  - Drug ineffective [Not Recovered/Not Resolved]
  - Psoriasis [Unknown]
  - Hepatic enzyme increased [Unknown]
  - Hepatic steatosis [Unknown]
  - Sleep apnoea syndrome [Unknown]
  - Sleep apnoea syndrome [Unknown]
  - Carpal tunnel syndrome [Recovered/Resolved]
